FAERS Safety Report 12846319 (Version 1)
Quarter: 2016Q4

REPORT INFORMATION
  Report Type: Spontaneous
  Country: US (occurrence: US)
  Receive Date: 20161014
  Receipt Date: 20161014
  Transmission Date: 20170207
  Serious: Yes (Other)
  Sender: FDA-Public Use
  Company Number: US-TEVA-690661USA

PATIENT
  Sex: Female
  Weight: 83.99 kg

DRUGS (2)
  1. TELMISARTAN. [Suspect]
     Active Substance: TELMISARTAN
     Indication: HYPERTENSION
     Route: 065
     Dates: start: 201604
  2. IBUPROFEN. [Suspect]
     Active Substance: IBUPROFEN
     Route: 065

REACTIONS (8)
  - Paraesthesia oral [Unknown]
  - Local swelling [Unknown]
  - Myalgia [Unknown]
  - Swollen tongue [Unknown]
  - Weight increased [Not Recovered/Not Resolved]
  - Bladder discomfort [Not Recovered/Not Resolved]
  - Urinary tract infection [Unknown]
  - Swelling face [Unknown]

NARRATIVE: CASE EVENT DATE: 2016
